FAERS Safety Report 10554207 (Version 2)
Quarter: 2014Q4

REPORT INFORMATION
  Report Type: Spontaneous
  Country: US (occurrence: US)
  Receive Date: 20141030
  Receipt Date: 20141030
  Transmission Date: 20150529
  Serious: Yes (Hospitalization, Other)
  Sender: FDA-Public Use
  Company Number: US-GLAXOSMITHKLINE-A0832063A

PATIENT
  Sex: Female
  Weight: 59.5 kg

DRUGS (6)
  1. AMARYL [Concomitant]
     Active Substance: GLIMEPIRIDE
  2. DYAZIDE [Concomitant]
     Active Substance: HYDROCHLOROTHIAZIDE\TRIAMTERENE
  3. NEURONTIN [Concomitant]
     Active Substance: GABAPENTIN
  4. DIOVAN [Concomitant]
     Active Substance: VALSARTAN
  5. AVANDIA [Suspect]
     Active Substance: ROSIGLITAZONE MALEATE
     Indication: TYPE 2 DIABETES MELLITUS
     Route: 048
     Dates: start: 1999, end: 2007
  6. AMITRIPTYLINE [Concomitant]
     Active Substance: AMITRIPTYLINE

REACTIONS (5)
  - Cardiac disorder [Unknown]
  - Diastolic dysfunction [Unknown]
  - Congestive cardiomyopathy [Unknown]
  - Cardiac failure congestive [Not Recovered/Not Resolved]
  - Chest pain [Unknown]
